FAERS Safety Report 9837489 (Version 2)
Quarter: 2014Q1

REPORT INFORMATION
  Report Type: Spontaneous
  Country: US (occurrence: None)
  Receive Date: 20131127
  Receipt Date: 20140228
  Transmission Date: 20141002
  Serious: Yes (Other)
  Sender: FDA-Public Use
  Company Number: 224077

PATIENT
  Sex: Female

DRUGS (1)
  1. PICATO (INGENOL MEBUTATE) (0.015 %) [Suspect]
     Indication: PRODUCT USED FOR UNKNOWN INDICATION
     Dosage: FOREHEAD AND CHEEKS

REACTIONS (2)
  - Skin exfoliation [None]
  - Incorrect drug administration duration [None]
